FAERS Safety Report 25188866 (Version 1)
Quarter: 2025Q2

REPORT INFORMATION
  Report Type: Other
  Country: DE (occurrence: DE)
  Receive Date: 20250411
  Receipt Date: 20250411
  Transmission Date: 20250716
  Serious: Yes (Other)
  Sender: B BRAUN
  Company Number: DE-B.Braun Medical Inc.-2174653

PATIENT
  Age: 54 Year
  Sex: Male

DRUGS (4)
  1. MEROPENEM [Suspect]
     Active Substance: MEROPENEM
     Indication: Evidence based treatment
  2. VANCOMYCIN [Suspect]
     Active Substance: VANCOMYCIN
  3. ACYCLOVIR [Suspect]
     Active Substance: ACYCLOVIR
  4. AMPICILLIN [Suspect]
     Active Substance: AMPICILLIN

REACTIONS (1)
  - Encephalitis [Unknown]
